FAERS Safety Report 8568662-5 (Version None)
Quarter: 2012Q3

REPORT INFORMATION
  Report Type: 
  Country: None (occurrence: None)
  Receive Date: 20120803
  Receipt Date: 20120406
  Transmission Date: 20120928
  Serious: No
  Sender: FDA-Public Use
  Company Number: US-ABBOTT-12P-163-0922621-00

PATIENT
  Sex: Female
  Weight: 113.5 kg

DRUGS (5)
  1. NIASPAN [Suspect]
     Dates: start: 20111101, end: 20120401
  2. CRESTOR [Concomitant]
     Indication: PRODUCT USED FOR UNKNOWN INDICATION
  3. NIASPAN [Suspect]
     Dates: start: 20120401
  4. ASPIRIN [Concomitant]
     Indication: PRODUCT USED FOR UNKNOWN INDICATION
     Dosage: 30 MINUTES BEFORE NIASPAN
  5. NIASPAN [Suspect]
     Indication: PRODUCT USED FOR UNKNOWN INDICATION
     Dates: start: 20110801, end: 20111101

REACTIONS (3)
  - VIITH NERVE PARALYSIS [None]
  - PRURITUS [None]
  - MUSCULAR WEAKNESS [None]
